FAERS Safety Report 10522347 (Version 2)
Quarter: 2014Q4

REPORT INFORMATION
  Report Type: Spontaneous
  Country: US (occurrence: None)
  Receive Date: 20141010
  Receipt Date: 20141029
  Transmission Date: 20150528
  Serious: Yes (Death)
  Sender: FDA-Public Use
  Company Number: 2014AP005064

PATIENT
  Age: 18 Year
  Sex: Female
  Weight: 43 kg

DRUGS (22)
  1. ALBUTEROL /00139501/ (SALBUTAMOL) [Concomitant]
     Active Substance: ALBUTEROL
  2. CEPHALEXIN /00145501/ (CEFALEXIN) [Concomitant]
     Active Substance: CEPHALEXIN
  3. ATROVENT [Concomitant]
     Active Substance: IPRATROPIUM BROMIDE
  4. HALOPERIDOL. [Concomitant]
     Active Substance: HALOPERIDOL
  5. CLONIDINE. [Concomitant]
     Active Substance: CLONIDINE
  6. SODIUM CHLORIDE. [Concomitant]
     Active Substance: SODIUM CHLORIDE
  7. DIAZEPAM. [Concomitant]
     Active Substance: DIAZEPAM
  8. PHOSPHATE /01318702/ (PHOSPHORIC ACID SODIUM) [Concomitant]
  9. MIRALAX /00754501/ (MACROGOL) [Concomitant]
  10. TRIHEXYPHENIDYL [Concomitant]
     Active Substance: TRIHEXYPHENIDYL
  11. MULTIVITAMIN /00097801/ (ASCORBIC ACID, CALCIUM PANTOTHENATE, ERGOCALCIFEROL, NICOTINAMIDE, PYRIDOXINE HYDROCHLORIDE, RETINOL, RIBOFLAVIN, THIAMINE HYDROCHLORIDE) [Concomitant]
  12. NAPROXEN. [Concomitant]
     Active Substance: NAPROXEN
  13. ACETAMINOPHEN (PARACETAMOL) [Concomitant]
     Active Substance: ACETAMINOPHEN
  14. CALCIUM CARBONATE. [Concomitant]
     Active Substance: CALCIUM CARBONATE
  15. BACLOFEN. [Concomitant]
     Active Substance: BACLOFEN
  16. CLONAZEPAM. [Concomitant]
     Active Substance: CLONAZEPAM
  17. CETIRIZINE HYDROCHLORIDE. [Concomitant]
     Active Substance: CETIRIZINE HYDROCHLORIDE
  18. FERRIPROX [Suspect]
     Active Substance: DEFERIPRONE
     Indication: BASAL GANGLION DEGENERATION
     Route: 048
     Dates: start: 20140307, end: 20140626
  19. DOCUSATE SODIUM. [Concomitant]
     Active Substance: DOCUSATE SODIUM
  20. FLUTICASONE [Concomitant]
     Active Substance: FLUTICASONE\FLUTICASONE PROPIONATE
  21. GLYCOPYRROLATE /00196202/ (GLYCOPYRRONIUM BROMIDE) [Concomitant]
  22. OMEPRAZOLE. [Concomitant]
     Active Substance: OMEPRAZOLE

REACTIONS (4)
  - Death [None]
  - Infection [None]
  - Multi-organ failure [None]
  - Respiratory failure [None]

NARRATIVE: CASE EVENT DATE: 20140628
